FAERS Safety Report 19220070 (Version 1)
Quarter: 2021Q2

REPORT INFORMATION
  Report Type: Spontaneous
  Country: FR (occurrence: FR)
  Receive Date: 20210506
  Receipt Date: 20210506
  Transmission Date: 20210717
  Serious: Yes (Other)
  Sender: FDA-Public Use
  Company Number: FR-SUN PHARMACEUTICAL INDUSTRIES LTD-2021RR-294942

PATIENT
  Age: 23 Year
  Sex: Male

DRUGS (3)
  1. PREGABALIN. [Suspect]
     Active Substance: PREGABALIN
     Indication: DRUG DEPENDENCE
     Dosage: 5 DOSAGE FORM, DAILY
     Route: 048
  2. RIVOTRIL [Suspect]
     Active Substance: CLONAZEPAM
     Indication: DRUG DEPENDENCE
     Dosage: 4 DOSAGE FORM, SOMETIMES ONE ^WAFER^ PER DAY; AS NECESSARY
     Route: 048
     Dates: start: 20200701
  3. CANNABIS [Suspect]
     Active Substance: CANNABIS SATIVA SUBSP. INDICA TOP
     Indication: DRUG DEPENDENCE
     Dosage: 10 DOSAGE FORM, DAILY
     Route: 055
     Dates: start: 2015

REACTIONS (2)
  - Drug dependence [Recovering/Resolving]
  - Intentional product misuse [Recovering/Resolving]

NARRATIVE: CASE EVENT DATE: 2015
